FAERS Safety Report 17003170 (Version 1)
Quarter: 2019Q4

REPORT INFORMATION
  Report Type: Spontaneous
  Country: US (occurrence: US)
  Receive Date: 20191107
  Receipt Date: 20191107
  Transmission Date: 20200122
  Serious: Yes (Hospitalization, Other)
  Sender: FDA-Public Use
  Company Number: US-APOTEX-2019AP024440

PATIENT
  Age: 24 Year
  Sex: Female

DRUGS (2)
  1. CLONAZEPAM. [Suspect]
     Active Substance: CLONAZEPAM
     Indication: PRODUCT USED FOR UNKNOWN INDICATION
     Dosage: UNK, (APPROXIMATELY 15 TO 20 TABLETS )
     Route: 065
  2. ACETAMINOPHEN AND DIPHENHYDRAMINE HYDROCHLORIDE [Suspect]
     Active Substance: ACETAMINOPHEN\DIPHENHYDRAMINE HYDROCHLORIDE
     Indication: PRODUCT USED FOR UNKNOWN INDICATION
     Dosage: UNK
     Route: 065

REACTIONS (9)
  - Delirium [Recovered/Resolved]
  - Somnolence [Recovered/Resolved]
  - Overdose [Unknown]
  - Anticholinergic syndrome [Recovered/Resolved]
  - Tachycardia [Recovered/Resolved]
  - Abnormal behaviour [Recovered/Resolved]
  - Mydriasis [Recovered/Resolved]
  - Mucosal dryness [Recovered/Resolved]
  - Nystagmus [Recovered/Resolved]
